FAERS Safety Report 6786052-2 (Version None)
Quarter: 2010Q2

REPORT INFORMATION
  Report Type: 
  Country: None (occurrence: None)
  Receive Date: 20100623
  Receipt Date: 20100617
  Transmission Date: 20101027
  Serious: Yes (Life-Threatening)
  Sender: FDA-Public Use
  Company Number: TR-PFIZER INC-2010028517

PATIENT
  Sex: Male

DRUGS (1)
  1. SOMAVERT [Suspect]

REACTIONS (1)
  - NEOPLASM RECURRENCE [None]
